FAERS Safety Report 16050621 (Version 1)
Quarter: 2019Q1

REPORT INFORMATION
  Report Type: Spontaneous
  Country: ES (occurrence: ES)
  Receive Date: 20190308
  Receipt Date: 20190308
  Transmission Date: 20190418
  Serious: Yes (Hospitalization, Other)
  Sender: FDA-Public Use
  Company Number: ES-AUROBINDO-AUR-APL-2019-011668

PATIENT

DRUGS (4)
  1. SERTRALINE [Suspect]
     Active Substance: SERTRALINE HYDROCHLORIDE
     Indication: ANXIETY
     Dosage: UNK
     Route: 065
  2. TRANKIMAZIN [Suspect]
     Active Substance: ALPRAZOLAM
     Indication: ANXIETY
     Dosage: 1 MILLIGRAM, ONCE A DAY (0.5 MG, 2X/DAY)
     Route: 065
  3. SEGURIL [Concomitant]
     Active Substance: FUROSEMIDE
     Indication: PRODUCT USED FOR UNKNOWN INDICATION
     Dosage: UNK
     Route: 065
  4. LOSARTAN STADA [Concomitant]
     Indication: PRODUCT USED FOR UNKNOWN INDICATION
     Dosage: UNK
     Route: 065

REACTIONS (10)
  - Thrombosis [Unknown]
  - Head discomfort [Unknown]
  - Nervousness [Unknown]
  - Dyskinesia [Unknown]
  - Cardiac failure [Unknown]
  - Oedema peripheral [Unknown]
  - Swelling [Unknown]
  - Tension [Unknown]
  - Nasopharyngitis [Unknown]
  - Musculoskeletal chest pain [Unknown]
